FAERS Safety Report 4495572-5 (Version None)
Quarter: 2004Q4

REPORT INFORMATION
  Report Type: 
  Country: None (occurrence: None)
  Receive Date: 20041108
  Receipt Date: 20040820
  Transmission Date: 20050328
  Serious: Yes (Hospitalization)
  Sender: FDA-Public Use
  Company Number: JP-ROCHE-378207

PATIENT
  Age: 69 Year
  Sex: Male
  Weight: 68 kg

DRUGS (10)
  1. PEGASYS [Suspect]
     Route: 058
     Dates: start: 20040302
  2. NAFTOPIDIL [Suspect]
     Dosage: TRADE NAME REPORTED AS FLIVAS.
     Route: 048
     Dates: start: 20040615, end: 20040901
  3. EVIPROSTAT [Suspect]
     Route: 048
     Dates: start: 20040615, end: 20040901
  4. BLADDERON [Suspect]
     Dosage: TOTAL DAILY DOSE: 400 MG.
     Route: 048
     Dates: start: 20040615, end: 20040901
  5. DICLOFENAC SODIUM [Concomitant]
     Indication: PYREXIA
     Dosage: ALSO TAKEN AS NEEDED. TRADE NAME: VONAFEC.
     Route: 054
     Dates: start: 20040629
  6. AMLODIN [Concomitant]
     Indication: HYPERTENSION
     Route: 048
     Dates: start: 20030704
  7. KM [Concomitant]
     Indication: ENTEROCOLITIS
     Dosage: TAKEN AS NEEDED.
     Route: 048
     Dates: start: 20040618, end: 20040621
  8. SCOPOLIA EXTRACT [Concomitant]
     Indication: ENTEROCOLITIS
     Dosage: TAKEN AS NEEDED.
     Route: 048
     Dates: start: 20040618, end: 20040621
  9. TANNALBIN [Concomitant]
     Indication: ENTEROCOLITIS
     Dosage: TAKEN AS NEEDED.
     Route: 048
     Dates: start: 20040618, end: 20040621
  10. UNKNOWN DRUG [Concomitant]
     Dosage: DRUG NAME REPORTED AS NARCOLEPTIC.
     Route: 048
     Dates: start: 20040715

REACTIONS (9)
  - ALANINE AMINOTRANSFERASE INCREASED [None]
  - ASPARTATE AMINOTRANSFERASE INCREASED [None]
  - BUNDLE BRANCH BLOCK RIGHT [None]
  - CHOKING SENSATION [None]
  - ELECTROCARDIOGRAM ST-T SEGMENT ABNORMAL [None]
  - GAMMA-GLUTAMYLTRANSFERASE INCREASED [None]
  - PALPITATIONS [None]
  - PRODUCTIVE COUGH [None]
  - VENTRICULAR EXTRASYSTOLES [None]
